FAERS Safety Report 8490995-1 (Version None)
Quarter: 2012Q3

REPORT INFORMATION
  Report Type: 
  Country: None (occurrence: None)
  Receive Date: 20120706
  Receipt Date: 20120628
  Transmission Date: 20120928
  Serious: Yes (Death, Life-Threatening, Hospitalization, Other)
  Sender: FDA-Public Use
  Company Number: BE-CELGENEUS-013-21880-11021080

PATIENT
  Sex: Male
  Weight: 80 kg

DRUGS (26)
  1. REVLIMID [Suspect]
     Indication: MULTIPLE MYELOMA
     Dosage: 25 MILLIGRAM
     Route: 048
     Dates: start: 20100702
  2. DILTIAZEM HCL [Concomitant]
     Indication: ANGINA PECTORIS
     Dosage: 300 MILLIGRAM
     Route: 048
  3. ASPIRIN [Concomitant]
     Dosage: 3 MILLIGRAM
     Route: 048
     Dates: start: 20100820
  4. LIPITOR [Concomitant]
     Dosage: 20 MILLIGRAM
     Route: 048
  5. ACETAMINOPHEN [Concomitant]
     Indication: PAIN
     Dosage: 2 GRAM
     Route: 048
     Dates: start: 20100816
  6. TRAMADOL HCL [Concomitant]
     Dosage: 3 MILLIGRAM
     Route: 048
     Dates: start: 20100820
  7. CORUNO [Concomitant]
     Indication: ANGINA PECTORIS
     Dosage: 16 MILLIGRAM
     Route: 048
  8. REVLIMID [Suspect]
     Dosage: 25 MILLIGRAM
     Route: 048
     Dates: end: 20100926
  9. DEXAMETHASONE [Suspect]
     Dosage: 5.7143 MILLIGRAM
     Route: 048
     Dates: end: 20100926
  10. LASIX [Concomitant]
     Indication: FLUID RETENTION
     Dosage: 40 MILLIGRAM
     Route: 048
     Dates: start: 20100701, end: 20100813
  11. ACETAMINOPHEN [Concomitant]
     Dosage: 500 MILLIGRAM
     Route: 048
     Dates: start: 20100824, end: 20100824
  12. SINTROM [Concomitant]
     Dosage: 3 MILLIGRAM
     Route: 048
     Dates: start: 20100820
  13. AUGMENTIN '125' [Concomitant]
     Indication: ANTI-INFECTIVE THERAPY
     Dosage: 3000 MILLIGRAM
     Route: 041
     Dates: start: 20100816, end: 20100820
  14. ESCITALOPRAM OXALATE [Concomitant]
     Indication: DEPRESSION
     Dosage: 10 MILLIGRAM
     Route: 048
     Dates: start: 20100817
  15. DEXAMETHASONE [Suspect]
     Dosage: 5.7143 MILLIGRAM
     Route: 048
     Dates: start: 20100806, end: 20100914
  16. BELSAR [Concomitant]
     Indication: HYPERTENSION
     Dosage: 40 MILLIGRAM
     Route: 048
  17. GABAPENTIN [Concomitant]
     Dosage: 900 MILLIGRAM
     Route: 048
     Dates: start: 20090316
  18. PANTOPRAZOLE [Concomitant]
     Dosage: 20 MILLIGRAM
     Route: 048
     Dates: start: 20100816
  19. SINTROM [Concomitant]
     Indication: THROMBOSIS PROPHYLAXIS
     Dosage: 1 MILLIGRAM
     Route: 048
     Dates: start: 20100817, end: 20100819
  20. ASPIRIN [Concomitant]
     Indication: ANGINA PECTORIS
     Dosage: 160 MILLIGRAM
     Route: 048
     Dates: start: 20100816
  21. TRAMADOL HCL [Concomitant]
     Indication: PAIN
     Dosage: 60 DROPS
     Route: 048
     Dates: start: 20100820
  22. PERFUSALGAN [Concomitant]
     Indication: PAIN
     Dosage: 5 GRAM
     Route: 041
     Dates: start: 20100816, end: 20100822
  23. REVLIMID [Suspect]
     Dosage: 25 MILLIGRAM
     Route: 048
     Dates: start: 20100806, end: 20100914
  24. DEXAMETHASONE [Suspect]
     Indication: MULTIPLE MYELOMA
     Dosage: 5.7143 MILLIGRAM
     Route: 048
     Dates: start: 20100702
  25. DURAGESIC-100 [Concomitant]
     Indication: PAIN
     Dosage: 18.75 MICROGRAM
     Route: 023
     Dates: start: 20100816, end: 20100817
  26. VOLTAREN [Concomitant]
     Indication: PAIN
     Dosage: 150 MILLIGRAM
     Route: 048
     Dates: start: 20100816

REACTIONS (2)
  - PANCREATIC CARCINOMA METASTATIC [None]
  - GENERAL PHYSICAL HEALTH DETERIORATION [None]
